FAERS Safety Report 8864255 (Version 1)
Quarter: 2012Q4

REPORT INFORMATION
  Report Type: 
  Country: US (occurrence: US)
  Receive Date: 20121024
  Receipt Date: 20121024
  Transmission Date: 20130627
  Serious: No
  Sender: FDA-Public Use
  Company Number: US-AMGEN-USASP2011066265

PATIENT
  Age: 61 Year
  Sex: Female
  Weight: 108.84 kg

DRUGS (8)
  1. ENBREL [Suspect]
     Indication: PRODUCT USED FOR UNKNOWN INDICATION
     Dosage: 25 mg, 2 times/wk
     Route: 058
  2. TORASEMIDE [Concomitant]
     Dosage: 20 mg, UNK
  3. AMLODIPINE [Concomitant]
     Dosage: 2.5 mg, UNK
  4. LEVOTHYROXINE [Concomitant]
     Dosage: 100 mug, UNK
  5. GLIPIZIDE ER [Concomitant]
     Dosage: 2.5 mg, UNK
  6. CRESTOR [Concomitant]
     Dosage: 20 mg, UNK
  7. ALLOPURINOL [Concomitant]
  8. LOSARTAN POT [Concomitant]
     Dosage: 50 mg, UNK

REACTIONS (1)
  - Nasopharyngitis [Unknown]
